FAERS Safety Report 11183631 (Version 1)
Quarter: 2015Q2

REPORT INFORMATION
  Report Type: Spontaneous
  Country: US (occurrence: None)
  Receive Date: 20150610
  Receipt Date: 20150610
  Transmission Date: 20150821
  Serious: No
  Sender: FDA-Public Use
  Company Number: None

PATIENT

DRUGS (2)
  1. VANCOMYCIN HCL [Suspect]
     Active Substance: VANCOMYCIN HYDROCHLORIDE
  2. ORA-SWEET SUGAR FREE FLAVORED SYRUP [Suspect]
     Active Substance: SORBITOL

REACTIONS (3)
  - Product gel formation [None]
  - Liquid product physical issue [None]
  - Product quality issue [None]

NARRATIVE: CASE EVENT DATE: 20150609
